FAERS Safety Report 4319482-9 (Version None)
Quarter: 2004Q1

REPORT INFORMATION
  Report Type: 
  Country: None (occurrence: None)
  Receive Date: 20040318
  Receipt Date: 20040318
  Transmission Date: 20041129
  Serious: Yes (Life-Threatening, Hospitalization)
  Sender: FDA-Public Use
  Company Number: None

PATIENT
  Age: 73 Year
  Sex: Male

DRUGS (13)
  1. GATIFLOXACIN [Suspect]
     Indication: RESPIRATORY TRACT INFECTION
     Dosage: 400 MG QD ORAL
     Route: 048
     Dates: start: 20040213, end: 20040214
  2. GLYBURIDE [Concomitant]
  3. GABAPENTIN [Concomitant]
  4. LASIX [Concomitant]
  5. LIPITOR [Concomitant]
  6. FOSAMAX [Concomitant]
  7. ACIPHEX [Concomitant]
  8. ATENOLOL [Concomitant]
  9. AVANDIA [Concomitant]
  10. LOPID [Concomitant]
  11. ISORDIL [Concomitant]
  12. ASPIRIN [Concomitant]
  13. LACTULOSE [Concomitant]

REACTIONS (1)
  - HYPOGLYCAEMIA [None]
